FAERS Safety Report 8529008 (Version 7)
Quarter: 2012Q4

REPORT INFORMATION
  Report Type: 
  Country: GB (occurrence: GB)
  Receive Date: 20120425
  Receipt Date: 20121129
  Transmission Date: 20130627
  Serious: Yes (Death, Other)
  Sender: FDA-Public Use
  Company Number: PHFR2012GB002446

PATIENT
  Age: 29 None
  Sex: Male

DRUGS (5)
  1. CLOZARIL [Suspect]
     Indication: SCHIZOPHRENIA
     Dosage: 450 mg, daily
     Route: 048
     Dates: start: 20080516
  2. ARIPIPRAZOLE [Concomitant]
     Dosage: 100 mg, daily
     Route: 048
  3. VENLAFAXINE [Concomitant]
     Indication: AFFECTIVE DISORDER
     Dosage: 150 mg, daily
     Route: 048
  4. HYOSCINE [Concomitant]
     Dosage: 350 ug, daily
     Route: 048
  5. VALPROATE SODIUM [Concomitant]
     Indication: CONVULSION
     Dosage: 2 mg, daily
     Route: 048

REACTIONS (6)
  - Sarcoma [Fatal]
  - Lung neoplasm malignant [Fatal]
  - Type 1 diabetes mellitus [Unknown]
  - Mental disorder due to a general medical condition [Unknown]
  - Platelet count increased [Unknown]
  - Obesity [Unknown]
